FAERS Safety Report 16893717 (Version 2)
Quarter: 2021Q2

REPORT INFORMATION
  Report Type: Spontaneous
  Country: US (occurrence: US)
  Receive Date: 20191008
  Receipt Date: 20210415
  Transmission Date: 20210716
  Serious: Yes (Death, Hospitalization)
  Sender: FDA-Public Use
  Company Number: US-TEVA-2019-US-1116595

PATIENT
  Age: 61 Year
  Sex: Female

DRUGS (7)
  1. AMLODIPINE/VALSARTAN/HYDROCHLOROTHIAZIDE TEVA [Suspect]
     Active Substance: AMLODIPINE\HYDROCHLOROTHIAZIDE\VALSARTAN
     Indication: HYPERTENSION
     Dosage: 10/320/25 MG
     Route: 048
     Dates: start: 20150102, end: 20160909
  2. AMLODIPINE/VALSARTAN/HYDROCHOLOROTHIAZIDE TORRENT PHARMACEUTICALS [Suspect]
     Active Substance: AMLODIPINE\HYDROCHLOROTHIAZIDE\VALSARTAN
     Indication: HYPERTENSION
     Route: 048
     Dates: start: 20170808, end: 20180822
  3. EXFORGE [Concomitant]
     Active Substance: AMLODIPINE BESYLATE\VALSARTAN
     Indication: HYPERTENSION
     Dates: start: 2012, end: 2016
  4. LEXAPRO [Concomitant]
     Active Substance: ESCITALOPRAM OXALATE
     Indication: DEPRESSION
     Dates: start: 2015, end: 2019
  5. AMLODIPINE/VALSARTAN/HYDROCHOLORTHIAZIDE SANDOZ [Suspect]
     Active Substance: AMLODIPINE\HYDROCHLOROTHIAZIDE\VALSARTAN
     Indication: HYPERTENSION
     Route: 048
     Dates: start: 20170808, end: 20180822
  6. TRAMADOL. [Concomitant]
     Active Substance: TRAMADOL
     Indication: PAIN
     Route: 048
     Dates: start: 2012, end: 2019
  7. ALPRAZOLAM. [Concomitant]
     Active Substance: ALPRAZOLAM
     Indication: ANXIETY
     Dates: start: 2012, end: 2019

REACTIONS (2)
  - Colon cancer stage IV [Fatal]
  - Brain neoplasm [Fatal]
